FAERS Safety Report 9659263 (Version 2)
Quarter: 2014Q2

REPORT INFORMATION
  Report Type: Spontaneous
  Country: US (occurrence: US)
  Receive Date: 20131031
  Receipt Date: 20140521
  Transmission Date: 20141212
  Serious: Yes (Hospitalization)
  Sender: FDA-Public Use
  Company Number: US-BAYER-2013-130696

PATIENT
  Age: 30 Year
  Sex: Female

DRUGS (5)
  1. YAZ [Suspect]
     Indication: PREMENSTRUAL SYNDROME
     Dosage: UNK
  2. ALFUZOSIN HYDROCHLORIDE [Concomitant]
     Dosage: 10 MG, UNK
     Route: 048
     Dates: start: 20080726
  3. OXYCODONE [Concomitant]
     Dosage: 5-325 MG
     Route: 048
     Dates: start: 20040331, end: 20130326
  4. LEVOXYL [Concomitant]
  5. ARMOUR THYROID [Concomitant]

REACTIONS (1)
  - Renal vein thrombosis [Recovered/Resolved]
